FAERS Safety Report 24195060 (Version 1)
Quarter: 2024Q3

REPORT INFORMATION
  Report Type: Spontaneous
  Country: JP (occurrence: JP)
  Receive Date: 20240809
  Receipt Date: 20240809
  Transmission Date: 20241016
  Serious: Yes (Hospitalization, Other)
  Sender: MEITHEAL PHARMACEUTICALS
  Company Number: JP-MEITHEAL-2024MPLIT00239

PATIENT
  Age: 63 Year
  Sex: Male

DRUGS (4)
  1. CARBOPLATIN [Suspect]
     Active Substance: CARBOPLATIN
     Indication: Lung squamous cell carcinoma stage IV
     Route: 065
  2. PACLITAXEL [Suspect]
     Active Substance: PACLITAXEL
     Indication: Lung squamous cell carcinoma stage IV
     Route: 065
  3. IPILIMUMAB [Suspect]
     Active Substance: IPILIMUMAB
     Indication: Lung squamous cell carcinoma stage IV
     Route: 065
  4. NIVOLUMAB [Suspect]
     Active Substance: NIVOLUMAB
     Indication: Lung squamous cell carcinoma stage IV
     Route: 065

REACTIONS (1)
  - Interstitial lung disease [Recovering/Resolving]
